FAERS Safety Report 20985824 (Version 1)
Quarter: 2022Q2

REPORT INFORMATION
  Report Type: Other
  Country: AT (occurrence: AT)
  Receive Date: 20220621
  Receipt Date: 20220621
  Transmission Date: 20220721
  Serious: Yes (Life-Threatening, Other)
  Sender: FDA-Public Use
  Company Number: AT-DENTSPLY-2022SCDP000162

PATIENT
  Age: 24 Year
  Sex: Female

DRUGS (3)
  1. MEPIVACAINE [Suspect]
     Active Substance: MEPIVACAINE HYDROCHLORIDE
     Indication: Local anaesthesia
     Dosage: 1 % MEPINAEST PURUM-VIALS (ACCORDING TO TECHNICAL INFORMATION AND RECOMMENDATIONS FOR USE)
     Dates: start: 20220525, end: 20220525
  2. BUPIVACAINE HYDROCHLORIDE [Suspect]
     Active Substance: BUPIVACAINE HYDROCHLORIDE
     Indication: Local anaesthesia
     Dosage: 0.5% BUCAIN SOLUTION FOR INJECTION (ACCORDING TO TECHNICAL INFORMATION AND RECOMMENDATIONS FOR USE)
     Dates: start: 20220525, end: 20220525
  3. ARTICAINE HYDROCHLORIDE\EPINEPHRINE HYDROCHLORIDE [Suspect]
     Active Substance: ARTICAINE HYDROCHLORIDE\EPINEPHRINE HYDROCHLORIDE
     Indication: Local anaesthesia
     Dosage: UNK ULTRACAIN DENTAL AMPULLEN (ACCORDING TO TECHNICAL INFORMATION AND RECOMMENDATIONS FOR USE)
     Dates: start: 20220525, end: 20220525

REACTIONS (1)
  - Type I hypersensitivity [Recovered/Resolved]

NARRATIVE: CASE EVENT DATE: 20220525
